FAERS Safety Report 19161371 (Version 2)
Quarter: 2021Q3

REPORT INFORMATION
  Report Type: Report from Study
  Country: None (occurrence: US)
  Receive Date: 20210421
  Receipt Date: 20210719
  Transmission Date: 20211014
  Serious: Yes (Hospitalization)
  Sender: FDA-Public Use
  Company Number: US-ABBVIE-20K-163-3690358-00

PATIENT
  Age: 27 Year
  Sex: Male

DRUGS (2)
  1. HUMIRA [Suspect]
     Active Substance: ADALIMUMAB
     Indication: CROHN^S DISEASE
     Route: 058
     Dates: start: 20201009
  2. HUMIRA [Suspect]
     Active Substance: ADALIMUMAB
     Indication: PSORIASIS

REACTIONS (20)
  - Intestinal obstruction [Unknown]
  - Diarrhoea haemorrhagic [Recovering/Resolving]
  - Haemorrhage [Unknown]
  - Abdominal discomfort [Not Recovered/Not Resolved]
  - Frequent bowel movements [Recovered/Resolved]
  - Middle insomnia [Not Recovered/Not Resolved]
  - Gastrooesophageal reflux disease [Unknown]
  - Anxiety [Recovered/Resolved]
  - Depressed mood [Recovered/Resolved]
  - Abdominal pain lower [Recovering/Resolving]
  - Constipation [Not Recovered/Not Resolved]
  - Fatigue [Unknown]
  - Decreased appetite [Recovering/Resolving]
  - Malaise [Not Recovered/Not Resolved]
  - Haematochezia [Recovered/Resolved]
  - Vomiting [Recovering/Resolving]
  - Weight decreased [Unknown]
  - Poor quality sleep [Recovered/Resolved]
  - Retching [Unknown]
  - Nausea [Recovering/Resolving]

NARRATIVE: CASE EVENT DATE: 2020
